FAERS Safety Report 13904823 (Version 1)
Quarter: 2017Q3

REPORT INFORMATION
  Report Type: Spontaneous
  Country: US (occurrence: None)
  Receive Date: 20170820
  Receipt Date: 20170820
  Transmission Date: 20171127
  Serious: No
  Sender: FDA-Public Use
  Company Number: None

PATIENT
  Age: 66 Year
  Sex: Female

DRUGS (2)
  1. DAKLINZA [Concomitant]
     Active Substance: DACLATASVIR
  2. SOVALDI [Suspect]
     Active Substance: SOFOSBUVIR

REACTIONS (5)
  - Fatigue [None]
  - Headache [None]
  - Stress [None]
  - Diarrhoea [None]
  - Sleep disorder [None]

NARRATIVE: CASE EVENT DATE: 20170818
